FAERS Safety Report 5007380-7 (Version None)
Quarter: 2006Q2

REPORT INFORMATION
  Report Type: 
  Country: None (occurrence: None)
  Receive Date: 20060517
  Receipt Date: 20060503
  Transmission Date: 20061013
  Serious: Yes (Hospitalization)
  Sender: FDA-Public Use
  Company Number: 2006RR-02199

PATIENT
  Age: 43 Year
  Sex: Male
  Weight: 71 kg

DRUGS (5)
  1. FLUOXETINE [Suspect]
  2. MEPERIDINE HCL [Suspect]
     Indication: PREMEDICATION
     Dosage: 50 MG, INTRAVENOUS
     Route: 042
  3. FENOFIBRATE TABLETS (FENOFIBRATE) [Concomitant]
  4. ROSIGLITAZONE [Concomitant]
  5. MIDAZOLAM HYDROCHLORIDE (MIDAZOLAM) [Concomitant]

REACTIONS (9)
  - ABDOMINAL PAIN [None]
  - BLOOD PRESSURE DECREASED [None]
  - BLOOD PRESSURE INCREASED [None]
  - DIARRHOEA [None]
  - DRUG INTERACTION [None]
  - OXYGEN SATURATION DECREASED [None]
  - PANCREATITIS [None]
  - SEROTONIN SYNDROME [None]
  - VOMITING [None]
